FAERS Safety Report 7557236-0 (Version None)
Quarter: 2011Q2

REPORT INFORMATION
  Report Type: 
  Country: None (occurrence: None)
  Receive Date: 20110620
  Receipt Date: 20110408
  Transmission Date: 20111010
  Serious: No
  Sender: FDA-Public Use
  Company Number: US-MYLANLABS-2011S1007658

PATIENT
  Age: 57 Year
  Sex: Female
  Weight: 60.33 kg

DRUGS (5)
  1. PERFOROMIST [Suspect]
     Indication: CHRONIC OBSTRUCTIVE PULMONARY DISEASE
     Route: 055
     Dates: start: 20110101
  2. SPIRIVA [Concomitant]
  3. SIMVASTATIN [Concomitant]
  4. TRANXENE [Concomitant]
  5. AVAPRO [Concomitant]

REACTIONS (1)
  - GASTROOESOPHAGEAL REFLUX DISEASE [None]
